FAERS Safety Report 7142933-1 (Version None)
Quarter: 2010Q4

REPORT INFORMATION
  Report Type: 
  Country: None (occurrence: None)
  Receive Date: 20101208
  Receipt Date: 20100331
  Transmission Date: 20110411
  Serious: Yes (Death, Hospitalization)
  Sender: FDA-Public Use
  Company Number: US-ACTELION-A-US2010-33615

PATIENT
  Sex: Female

DRUGS (16)
  1. TRACLEER [Suspect]
     Indication: PULMONARY ARTERIAL HYPERTENSION
     Dosage: 125 MG, BID
     Route: 048
     Dates: start: 20081227
  2. CALCIUM CHANNEL BLOCKERS [Concomitant]
  3. COUMADIN [Concomitant]
  4. ADVAIR [Concomitant]
  5. LIPITOR [Concomitant]
  6. DILTIAZEM [Concomitant]
  7. PAXIL [Concomitant]
  8. KLONOPIN [Concomitant]
  9. AMOXICILLIN [Concomitant]
  10. PHOSLO [Concomitant]
  11. XANAX [Concomitant]
  12. PROTONIX [Concomitant]
  13. DARVOCET [Concomitant]
  14. LANTUS [Concomitant]
  15. HUMALOG [Concomitant]
  16. ALBUTEROL [Concomitant]

REACTIONS (7)
  - ANAEMIA [None]
  - DEATH [None]
  - DYSPNOEA [None]
  - OXYGEN SATURATION DECREASED [None]
  - RESPIRATORY FAILURE [None]
  - SEPTIC SHOCK [None]
  - UROSEPSIS [None]
